FAERS Safety Report 23715376 (Version 3)
Quarter: 2024Q2

REPORT INFORMATION
  Report Type: Report from Study
  Country: CO (occurrence: CO)
  Receive Date: 20240407
  Receipt Date: 20240606
  Transmission Date: 20240715
  Serious: Yes (Hospitalization, Other)
  Sender: FDA-Public Use
  Company Number: CO-ABBVIE-5709380

PATIENT
  Age: 72 Year
  Sex: Male

DRUGS (15)
  1. VENCLEXTA [Suspect]
     Active Substance: VENETOCLAX
     Indication: Acute myeloid leukaemia
     Route: 048
     Dates: start: 20231224, end: 20240319
  2. AZACITIDINE [Concomitant]
     Active Substance: AZACITIDINE
     Indication: Acute myeloid leukaemia
     Dates: start: 20231224, end: 20240324
  3. METOCLOPRAMIDE [Concomitant]
     Active Substance: METOCLOPRAMIDE
     Indication: Prophylaxis of nausea and vomiting
     Route: 042
     Dates: start: 20240409, end: 20240411
  4. PEGFILGRASTIM [Concomitant]
     Active Substance: PEGFILGRASTIM
     Indication: Acute myeloid leukaemia
     Dosage: 6 MILLIGRAM?SINGLE DOSE
     Route: 058
     Dates: start: 20240412, end: 20240412
  5. ONDANSETRON [Concomitant]
     Active Substance: ONDANSETRON
     Indication: Prophylaxis of nausea and vomiting
     Route: 042
     Dates: start: 20240409, end: 20240412
  6. CEFEPIME [Concomitant]
     Active Substance: CEFEPIME HYDROCHLORIDE
     Indication: Febrile neutropenia
     Dosage: FORM STRENGTH: 1 GRAM
     Route: 042
     Dates: start: 20240531
  7. ACETAMINOPHEN [Concomitant]
     Active Substance: ACETAMINOPHEN
     Indication: Febrile neutropenia
     Dosage: FORM STRENGTH: 500 MILLIGRAM?SINGLE DOSE
     Route: 048
     Dates: start: 20240531
  8. LACTULOSE [Concomitant]
     Active Substance: LACTULOSE
     Indication: Constipation prophylaxis
     Route: 048
     Dates: start: 20240409, end: 20240411
  9. POSACONAZOLE [Concomitant]
     Active Substance: POSACONAZOLE
     Indication: Antifungal prophylaxis
     Dosage: 300 MILLIGRAM
     Route: 048
     Dates: start: 20240409, end: 20240411
  10. FLUDARABINE PHOSPHATE [Concomitant]
     Active Substance: FLUDARABINE PHOSPHATE
     Indication: Acute myeloid leukaemia
     Route: 042
     Dates: start: 20240409, end: 20240411
  11. DUTASTERIDE\TAMSULOSIN HYDROCHLORIDE [Concomitant]
     Active Substance: DUTASTERIDE\TAMSULOSIN HYDROCHLORIDE
     Indication: Benign prostatic hyperplasia
     Dosage: 0.5 MILLIGRAM
     Route: 048
     Dates: start: 20240409, end: 20240411
  12. ACYCLOVIR [Concomitant]
     Active Substance: ACYCLOVIR
     Indication: Antiviral prophylaxis
     Dosage: FORM STRENGTH: 200 MG
     Route: 048
     Dates: start: 20240409, end: 20240412
  13. OMEPRAZOLE [Concomitant]
     Active Substance: DONEPEZIL HYDROCHLORIDE\OMEPRAZOLE\OMEPRAZOLE MAGNESIUM
     Indication: Gastrointestinal disorder prophylaxis
     Dosage: 20 MILLIGRAM
     Route: 048
     Dates: start: 20240409, end: 20240412
  14. ENOXAPARIN [Concomitant]
     Active Substance: ENOXAPARIN
     Indication: Thrombosis prophylaxis
     Dosage: 40 MILLIGRAM
     Route: 058
     Dates: start: 20240409, end: 20240411
  15. CYTARABINE [Concomitant]
     Active Substance: CYTARABINE
     Indication: Acute myeloid leukaemia
     Dates: start: 20240409, end: 20240410

REACTIONS (13)
  - Haematotoxicity [Unknown]
  - Blood creatinine increased [Unknown]
  - Febrile neutropenia [Recovered/Resolved]
  - Headache [Unknown]
  - Chills [Unknown]
  - Cough [Unknown]
  - Pyrexia [Unknown]
  - Malaise [Unknown]
  - Tachycardia [Unknown]
  - Hypotension [Unknown]
  - Febrile neutropenia [Recovering/Resolving]
  - Polyuria [Unknown]
  - Headache [Unknown]

NARRATIVE: CASE EVENT DATE: 20231226
